FAERS Safety Report 9499515 (Version 3)
Quarter: 2013Q4

REPORT INFORMATION
  Report Type: Spontaneous
  Country: US (occurrence: None)
  Receive Date: 20130107
  Receipt Date: 20131226
  Transmission Date: 20140711
  Serious: Yes (Other)
  Sender: FDA-Public Use
  Company Number: PHEH2012US022473

PATIENT
  Age: 53 Year
  Sex: Male

DRUGS (2)
  1. GILENYA [Suspect]
     Indication: MULTIPLE SCLEROSIS
     Route: 048
     Dates: start: 20120207
  2. AVONEX (INTERFERON BETA-1A) [Concomitant]

REACTIONS (4)
  - Oropharyngeal pain [None]
  - Headache [None]
  - Nasopharyngitis [None]
  - Oropharyngeal pain [None]
